FAERS Safety Report 7644576-X (Version None)
Quarter: 2011Q3

REPORT INFORMATION
  Report Type: 
  Country: None (occurrence: None)
  Receive Date: 20110729
  Receipt Date: 20110727
  Transmission Date: 20111222
  Serious: Yes (Life-Threatening, Hospitalization)
  Sender: FDA-Public Use
  Company Number: US-PFIZER INC-2011171244

PATIENT
  Sex: Female
  Weight: 78.912 kg

DRUGS (31)
  1. ZOLOFT [Suspect]
     Indication: HALLUCINATION, VISUAL
  2. TRILEPTAL [Suspect]
     Indication: DEPRESSION
     Dosage: UNK
  3. LAMICTAL [Suspect]
     Indication: BIPOLAR DISORDER
  4. VISTARIL [Suspect]
     Indication: HALLUCINATION, AUDITORY
  5. TRAZODONE HYDROCHLORIDE [Suspect]
     Indication: HALLUCINATION, AUDITORY
  6. TRAZODONE HYDROCHLORIDE [Suspect]
     Indication: HALLUCINATION, VISUAL
  7. LAMICTAL [Suspect]
     Indication: HALLUCINATION, VISUAL
  8. ZOLOFT [Suspect]
     Indication: MANIA
  9. TRAMADOL HYDROCHLORIDE [Suspect]
     Indication: PAIN
     Dosage: UNK
  10. TRAZODONE HYDROCHLORIDE [Suspect]
     Indication: DEPRESSION
     Dosage: UNK
  11. TRAZODONE HYDROCHLORIDE [Suspect]
     Indication: MANIA
  12. TRILEPTAL [Suspect]
     Indication: MANIA
  13. ZYPREXA [Suspect]
     Indication: HALLUCINATION, AUDITORY
  14. VISTARIL [Suspect]
     Indication: MANIA
  15. ZYPREXA [Suspect]
     Indication: DEPRESSION
     Dosage: UNK
     Dates: end: 20110101
  16. ZYPREXA [Suspect]
     Indication: MANIA
  17. LAMICTAL [Suspect]
     Indication: DEPRESSION
     Dosage: UNK
  18. LAMICTAL [Suspect]
     Indication: HALLUCINATION, AUDITORY
  19. ZYPREXA [Suspect]
     Indication: HALLUCINATION, VISUAL
  20. VISTARIL [Suspect]
     Indication: BIPOLAR DISORDER
  21. TRILEPTAL [Suspect]
     Indication: BIPOLAR DISORDER
  22. TRILEPTAL [Suspect]
     Indication: HALLUCINATION, VISUAL
  23. ZYPREXA [Suspect]
     Indication: BIPOLAR DISORDER
  24. ZOLOFT [Suspect]
     Indication: DEPRESSION
     Dosage: UNK
  25. VISTARIL [Suspect]
     Indication: HALLUCINATION, VISUAL
  26. ZOLOFT [Suspect]
     Indication: BIPOLAR DISORDER
  27. ZOLOFT [Suspect]
     Indication: HALLUCINATION, AUDITORY
  28. VISTARIL [Suspect]
     Indication: DEPRESSION
     Dosage: UNK
     Route: 048
  29. TRAZODONE HYDROCHLORIDE [Suspect]
     Indication: BIPOLAR DISORDER
  30. TRILEPTAL [Suspect]
     Indication: HALLUCINATION, AUDITORY
  31. LAMICTAL [Suspect]
     Indication: MANIA

REACTIONS (3)
  - INTENTIONAL SELF-INJURY [None]
  - SUICIDE ATTEMPT [None]
  - OVERDOSE [None]
